FAERS Safety Report 13877340 (Version 1)
Quarter: 2017Q3

REPORT INFORMATION
  Report Type: Spontaneous
  Country: FR (occurrence: FR)
  Receive Date: 20170817
  Receipt Date: 20170817
  Transmission Date: 20171127
  Serious: Yes (Other)
  Sender: FDA-Public Use
  Company Number: FR-BAYER-2017-155236

PATIENT
  Age: 34 Year
  Sex: Female

DRUGS (1)
  1. MIRENA [Suspect]
     Active Substance: LEVONORGESTREL
     Indication: CHEMICAL CONTRACEPTION
     Dosage: 20 MCG/24HR, CONT
     Route: 015
     Dates: start: 2007, end: 20170704

REACTIONS (5)
  - Abdominal pain upper [Unknown]
  - Libido decreased [Unknown]
  - Back pain [Unknown]
  - Anxiety [Unknown]
  - Breast cyst [Unknown]

NARRATIVE: CASE EVENT DATE: 20120315
